FAERS Safety Report 5609116-5 (Version None)
Quarter: 2008Q1

REPORT INFORMATION
  Report Type: 
  Country: None (occurrence: None)
  Receive Date: 20080130
  Receipt Date: 20080130
  Transmission Date: 20080703
  Serious: Yes (Life-Threatening)
  Sender: FDA-Public Use
  Company Number: None

PATIENT
  Age: 70 Year
  Sex: Male
  Weight: 86.1834 kg

DRUGS (1)
  1. GABAPENTIN [Suspect]
     Indication: NEURALGIA
     Dosage: 300MG 3XDAY ORAL
     Route: 048
     Dates: start: 20071205, end: 20071220

REACTIONS (6)
  - ANGER [None]
  - DYSPNOEA [None]
  - HEAD INJURY [None]
  - NERVE INJURY [None]
  - NEURALGIA [None]
  - VERBAL ABUSE [None]
